FAERS Safety Report 9732841 (Version 2)
Quarter: 2013Q4

REPORT INFORMATION
  Report Type: Spontaneous
  Country: US (occurrence: US)
  Receive Date: 20131205
  Receipt Date: 20131205
  Transmission Date: 20140711
  Serious: No
  Sender: FDA-Public Use
  Company Number: US-ABBVIE-12P-163-0996755-00

PATIENT
  Sex: Female
  Weight: 59.93 kg

DRUGS (2)
  1. OMNICEF [Suspect]
     Indication: PRODUCT USED FOR UNKNOWN INDICATION
  2. RIFAMPIN [Concomitant]
     Indication: PRODUCT USED FOR UNKNOWN INDICATION

REACTIONS (1)
  - Hypersensitivity [Unknown]
